FAERS Safety Report 13320080 (Version 1)
Quarter: 2017Q1

REPORT INFORMATION
  Report Type: Spontaneous
  Country: FR (occurrence: FR)
  Receive Date: 20170309
  Receipt Date: 20170309
  Transmission Date: 20170428
  Serious: Yes (Death, Life-Threatening, Hospitalization)
  Sender: FDA-Public Use
  Company Number: FR-ACCORD-048815

PATIENT
  Age: 70 Year
  Sex: Female

DRUGS (5)
  1. KARDEGIC [Concomitant]
     Active Substance: ASPIRIN LYSINE
  2. TAHOR [Concomitant]
     Active Substance: ATORVASTATIN CALCIUM
  3. ENDOXAN [Suspect]
     Active Substance: CYCLOPHOSPHAMIDE
     Indication: CHEMOTHERAPY
     Dosage: 1000 MG IN SINGLE INTAKE
     Route: 042
     Dates: start: 20161208
  4. DOCETAXEL ACCORD [Suspect]
     Active Substance: DOCETAXEL
     Indication: CHEMOTHERAPY
     Dosage: 120 MG IN SINGLE INTAKE
     Route: 042
     Dates: start: 20161208
  5. NIVESTIM [Concomitant]
     Active Substance: FILGRASTIM

REACTIONS (2)
  - Colitis ischaemic [Fatal]
  - Septic shock [Unknown]

NARRATIVE: CASE EVENT DATE: 20161214
